APPROVED DRUG PRODUCT: BRIMONIDINE TARTRATE AND TIMOLOL MALEATE
Active Ingredient: BRIMONIDINE TARTRATE; TIMOLOL MALEATE
Strength: 0.2%;EQ 0.5% BASE
Dosage Form/Route: SOLUTION/DROPS;OPHTHALMIC
Application: A215230 | Product #001 | TE Code: AB
Applicant: ALEMBIC PHARMACEUTICALS LTD
Approved: Aug 25, 2023 | RLD: No | RS: No | Type: RX